FAERS Safety Report 8882668 (Version 1)
Quarter: 2012Q4

REPORT INFORMATION
  Report Type: 
  Country: US (occurrence: US)
  Receive Date: 20121102
  Receipt Date: 20121102
  Transmission Date: 20130627
  Serious: Yes (Other)
  Sender: FDA-Public Use
  Company Number: PHHY2012US098355

PATIENT

DRUGS (3)
  1. CISPLATIN [Suspect]
     Indication: BONE SARCOMA
     Dosage: 60 mg/m2, UNK
  2. METHOTREXATE [Suspect]
     Dosage: 12 g/ sq. m
  3. DOXORUBICIN [Suspect]
     Dosage: 37.5 mg/m2, UNK

REACTIONS (5)
  - Constipation [Unknown]
  - Febrile neutropenia [Unknown]
  - Thrombocytopenia [Unknown]
  - Stomatitis [Unknown]
  - Alopecia [Unknown]
